FAERS Safety Report 22621531 (Version 1)
Quarter: 2023Q2

REPORT INFORMATION
  Report Type: Spontaneous
  Country: US (occurrence: None)
  Receive Date: 20230619
  Receipt Date: 20230619
  Transmission Date: 20230721
  Serious: Yes (Life-Threatening, Hospitalization, Other)
  Sender: FDA-Public Use
  Company Number: None

PATIENT
  Age: 26 Year
  Sex: Female
  Weight: 54 kg

DRUGS (5)
  1. PAXLOVID [Suspect]
     Active Substance: NIRMATRELVIR\RITONAVIR
     Indication: COVID-19
     Route: 048
     Dates: start: 20230505, end: 20230510
  2. DEPAKOTE [Suspect]
     Active Substance: DIVALPROEX SODIUM
  3. KEPPRA [Concomitant]
     Active Substance: LEVETIRACETAM
  4. CLONAZEPAM [Concomitant]
     Active Substance: CLONAZEPAM
  5. VIMPAT [Concomitant]
     Active Substance: LACOSAMIDE

REACTIONS (3)
  - Status epilepticus [None]
  - Pneumonia [None]
  - Anticonvulsant drug level abnormal [None]

NARRATIVE: CASE EVENT DATE: 20230521
